FAERS Safety Report 6577368-3 (Version None)
Quarter: 2010Q1

REPORT INFORMATION
  Report Type: 
  Country: None (occurrence: None)
  Receive Date: 20100211
  Receipt Date: 20100203
  Transmission Date: 20100710
  Serious: Yes (Hospitalization)
  Sender: FDA-Public Use
  Company Number: CA-BIOGENIDEC-2010BI004311

PATIENT
  Age: 61 Year
  Sex: Female

DRUGS (2)
  1. TYSABRI [Suspect]
     Indication: MULTIPLE SCLEROSIS
     Route: 042
     Dates: start: 20080904
  2. TYSABRI [Suspect]
     Route: 042
     Dates: start: 20080904

REACTIONS (4)
  - ARTERIAL OCCLUSIVE DISEASE [None]
  - FATIGUE [None]
  - INFECTION [None]
  - MULTIPLE SCLEROSIS RELAPSE [None]
